FAERS Safety Report 7898865-4 (Version None)
Quarter: 2011Q4

REPORT INFORMATION
  Report Type: 
  Country: None (occurrence: None)
  Receive Date: 20111107
  Receipt Date: 20111028
  Transmission Date: 20120403
  Serious: Yes (Other)
  Sender: FDA-Public Use
  Company Number: BR-ASTRAZENECA-2011SE65990

PATIENT
  Age: 72 Year
  Sex: Female
  Weight: 74 kg

DRUGS (5)
  1. DIGEDRAT [Suspect]
     Route: 048
     Dates: end: 20110101
  2. LONG LIFE [Concomitant]
     Indication: VITAMIN SUPPLEMENTATION
     Dosage: DAILY
     Route: 048
     Dates: start: 20010101
  3. ATACAND HCT [Suspect]
     Indication: HYPERTENSION
     Dosage: 16/12.5 MG DAILY
     Route: 048
     Dates: start: 20070101, end: 20111001
  4. IRBESARTAN + HYDROCHLOROTHIAZIDE [Concomitant]
     Indication: ARRHYTHMIA
     Dosage: DAILY
     Route: 048
     Dates: start: 20070101
  5. OMEPRAZOLE [Suspect]
     Indication: GASTRITIS
     Dosage: DAILY
     Route: 048
     Dates: start: 20010101, end: 20110101

REACTIONS (7)
  - WEIGHT INCREASED [None]
  - HYPOACUSIS [None]
  - EAR PAIN [None]
  - GINGIVAL INFECTION [None]
  - BLOOD PRESSURE INCREASED [None]
  - DRUG INEFFECTIVE [None]
  - HERPES ZOSTER [None]
